FAERS Safety Report 6086018-4 (Version None)
Quarter: 2009Q1

REPORT INFORMATION
  Report Type: 
  Country: None (occurrence: None)
  Receive Date: 20090220
  Receipt Date: 20090210
  Transmission Date: 20090719
  Serious: Yes (Death, Hospitalization, Other)
  Sender: FDA-Public Use
  Company Number: PR-BAXTER-2009BH002313

PATIENT
  Age: 65 Year
  Sex: Female

DRUGS (4)
  1. HEPARIN SODIUM INJECTION [Suspect]
     Indication: CARDIAC OPERATION
     Route: 065
     Dates: start: 19981201, end: 19981201
  2. INSULIN [Concomitant]
     Indication: DIABETES MELLITUS
  3. INSULATARD NPH HUMAN [Concomitant]
     Indication: DIABETES MELLITUS
  4. COUMADIN [Concomitant]
     Indication: DRUG USE FOR UNKNOWN INDICATION

REACTIONS (13)
  - ANOREXIA [None]
  - APATHY [None]
  - ASTHENIA [None]
  - DEEP VEIN THROMBOSIS [None]
  - FATIGUE [None]
  - GANGRENE [None]
  - HEAD DISCOMFORT [None]
  - HEADACHE [None]
  - PULMONARY EMBOLISM [None]
  - RENAL FAILURE [None]
  - RESPIRATORY FAILURE [None]
  - SKIN DISCOLOURATION [None]
  - WOUND COMPLICATION [None]
